FAERS Safety Report 7691212-2 (Version None)
Quarter: 2011Q3

REPORT INFORMATION
  Report Type: 
  Country: None (occurrence: None)
  Receive Date: 20110817
  Receipt Date: 20110817
  Transmission Date: 20111222
  Serious: No
  Sender: FDA-Public Use
  Company Number: None

PATIENT
  Sex: Male
  Weight: 87.7 kg

DRUGS (1)
  1. OMEPRAZOLE [Suspect]
     Dosage: 20 MG 1 PO QD ORALLY
     Route: 048
     Dates: start: 20070830

REACTIONS (2)
  - DRUG HYPERSENSITIVITY [None]
  - COUGH [None]
